FAERS Safety Report 18224621 (Version 1)
Quarter: 2020Q3

REPORT INFORMATION
  Report Type: Spontaneous
  Country: ES (occurrence: ES)
  Receive Date: 20200902
  Receipt Date: 20200902
  Transmission Date: 20201103
  Serious: Yes (Other)
  Sender: FDA-Public Use
  Company Number: ES-BAXTER-2020BAX017474

PATIENT
  Age: 3 Year
  Sex: Male
  Weight: 14.8 kg

DRUGS (6)
  1. VINCRISTINE SULFATE. [Suspect]
     Active Substance: VINCRISTINE SULFATE
     Indication: LEUKAEMIA
     Route: 042
     Dates: start: 20200523, end: 20200523
  2. RITUXIMAB. [Suspect]
     Active Substance: RITUXIMAB
     Indication: LEUKAEMIA
     Route: 042
     Dates: start: 20200521, end: 20200523
  3. DOXORUBICIN [Concomitant]
     Active Substance: DOXORUBICIN
     Indication: LEUKAEMIA
     Route: 042
     Dates: start: 20200524, end: 20200524
  4. GENOXAL [Suspect]
     Active Substance: CYCLOPHOSPHAMIDE
     Indication: LEUKAEMIA
     Route: 042
     Dates: start: 20200524, end: 20200526
  5. METHYLPREDNISOLONE. [Concomitant]
     Active Substance: METHYLPREDNISOLONE
     Indication: LEUKAEMIA
     Route: 042
     Dates: start: 20200521, end: 20200527
  6. METHOTREXATE. [Concomitant]
     Active Substance: METHOTREXATE
     Indication: LEUKAEMIA
     Route: 042
     Dates: start: 20200523, end: 20200523

REACTIONS (2)
  - Neuropathy peripheral [Recovering/Resolving]
  - Vocal cord paresis [Recovered/Resolved]

NARRATIVE: CASE EVENT DATE: 20200617
